FAERS Safety Report 12125434 (Version 1)
Quarter: 2016Q1

REPORT INFORMATION
  Report Type: Spontaneous
  Country: US (occurrence: US)
  Receive Date: 20160229
  Receipt Date: 20160229
  Transmission Date: 20160526
  Serious: No
  Sender: FDA-Public Use
  Company Number: US-ASTRAZENECA-2015SE96364

PATIENT
  Age: 75 Year
  Sex: Female

DRUGS (8)
  1. TOPROL XL [Suspect]
     Active Substance: METOPROLOL SUCCINATE
     Indication: HYPERTENSION
     Dosage: PAR^S, 200 MG DAILY, M 200
     Route: 048
  2. BENADRYL [Concomitant]
     Active Substance: DIPHENHYDRAMINE HYDROCHLORIDE
     Indication: SLEEP DISORDER
  3. TOPROL XL [Suspect]
     Active Substance: METOPROLOL SUCCINATE
     Indication: HYPERTENSION
     Dosage: PAR^S, 1 TABLET ONCE A DAY
     Route: 048
  4. TOPROL XL [Suspect]
     Active Substance: METOPROLOL SUCCINATE
     Indication: HYPERTENSION
     Dosage: PAR^S, 200 MG DAILY, A/MY
     Route: 048
  5. ZEGERID [Concomitant]
     Active Substance: OMEPRAZOLE\SODIUM BICARBONATE
     Indication: ANTACID THERAPY
  6. TOPROL XL [Suspect]
     Active Substance: METOPROLOL SUCCINATE
     Indication: HYPERTENSION
     Dosage: PAR^S, 200 MG DAILY, A/MO
     Route: 048
     Dates: start: 201602
  7. VITAMIN D 3 [Concomitant]
     Indication: SUPPLEMENTATION THERAPY
  8. TOPROL XL [Suspect]
     Active Substance: METOPROLOL SUCCINATE
     Indication: HYPERTENSION
     Dosage: PAR^S, 200 MG DAILY, M50
     Route: 048

REACTIONS (7)
  - Dizziness [Recovering/Resolving]
  - Paraesthesia oral [Not Recovered/Not Resolved]
  - Rash [Recovering/Resolving]
  - Abasia [Recovering/Resolving]
  - Nausea [Recovering/Resolving]
  - Headache [Not Recovered/Not Resolved]
  - Diarrhoea [Recovering/Resolving]

NARRATIVE: CASE EVENT DATE: 201602
